FAERS Safety Report 23956519 (Version 1)
Quarter: 2024Q2

REPORT INFORMATION
  Report Type: Other
  Country: DE (occurrence: None)
  Receive Date: 20240610
  Receipt Date: 20240610
  Transmission Date: 20240715
  Serious: Yes (Other)
  Sender: FDA-Public Use
  Company Number: DE-ROCHE-3576495

PATIENT
  Age: 84 Year
  Sex: Male
  Weight: 106 kg

DRUGS (5)
  1. ATEZOLIZUMAB [Suspect]
     Active Substance: ATEZOLIZUMAB
     Indication: Hepatocellular carcinoma
     Route: 065
     Dates: start: 20230405, end: 20231115
  2. ATEZOLIZUMAB [Suspect]
     Active Substance: ATEZOLIZUMAB
     Indication: Hepatocellular carcinoma
     Route: 065
     Dates: start: 20240208
  3. ASPIRIN [Concomitant]
     Active Substance: ASPIRIN
     Dates: start: 2022
  4. VALSARTAN [Concomitant]
     Active Substance: VALSARTAN
     Dates: start: 2022
  5. TORSEMIDE [Concomitant]
     Active Substance: TORSEMIDE
     Dates: start: 2022

REACTIONS (3)
  - Stevens-Johnson syndrome [Not Recovered/Not Resolved]
  - Dermatitis bullous [Not Recovered/Not Resolved]
  - Toxic epidermal necrolysis [Not Recovered/Not Resolved]

NARRATIVE: CASE EVENT DATE: 20240208
